FAERS Safety Report 9632811 (Version 2)
Quarter: 2013Q4

REPORT INFORMATION
  Report Type: Report from Study
  Country: BR (occurrence: BR)
  Receive Date: 20131018
  Receipt Date: 20131018
  Transmission Date: 20140711
  Serious: Yes (Other)
  Sender: FDA-Public Use
  Company Number: BR-ABBVIE-13P-020-1116212-00

PATIENT
  Sex: Female
  Weight: 62 kg

DRUGS (8)
  1. HUMIRA [Suspect]
     Indication: RHEUMATOID ARTHRITIS
     Route: 058
     Dates: start: 20120321
  2. OMEPRAZOLE [Concomitant]
     Indication: GASTRIC DISORDER
     Route: 048
  3. PURAN T4 [Concomitant]
     Indication: THYROID DISORDER
     Route: 048
     Dates: start: 2011
  4. RANITIDINE [Concomitant]
     Indication: GASTRIC DISORDER
     Route: 048
     Dates: start: 2011
  5. DOMPERIDONE [Concomitant]
     Indication: GASTROOESOPHAGEAL REFLUX DISEASE
     Route: 048
     Dates: start: 2011
  6. METFORMIN [Concomitant]
     Indication: DIABETES MELLITUS
  7. UNKNOWN MEDICATION [Concomitant]
     Indication: CARDIAC DISORDER
  8. AAS [Concomitant]
     Indication: BLOOD DISORDER

REACTIONS (3)
  - Vision blurred [Recovered/Resolved]
  - Cataract [Recovered/Resolved]
  - Drug dose omission [Unknown]
